FAERS Safety Report 12415846 (Version 1)
Quarter: 2016Q2

REPORT INFORMATION
  Report Type: Spontaneous
  Country: DE (occurrence: DE)
  Receive Date: 20160530
  Receipt Date: 20160530
  Transmission Date: 20160815
  Serious: Yes (Death)
  Sender: FDA-Public Use
  Company Number: DE-DRREDDYS-GER/GER/16/0079925

PATIENT
  Age: 78 Year
  Sex: Male
  Weight: 94 kg

DRUGS (2)
  1. LEVOTHYROXINE SODIUM. [Concomitant]
     Active Substance: LEVOTHYROXINE SODIUM
     Indication: HYPOTHYROIDISM
  2. METFORMIN [Suspect]
     Active Substance: METFORMIN HYDROCHLORIDE
     Indication: TYPE 2 DIABETES MELLITUS
     Route: 048
     Dates: start: 200108

REACTIONS (4)
  - Hypotension [Fatal]
  - Circulatory collapse [Fatal]
  - Hypothermia [Fatal]
  - Lactic acidosis [Fatal]

NARRATIVE: CASE EVENT DATE: 201411
